FAERS Safety Report 4842993-4 (Version None)
Quarter: 2005Q4

REPORT INFORMATION
  Report Type: 
  Country: None (occurrence: None)
  Receive Date: 20051201
  Receipt Date: 20031112
  Transmission Date: 20060501
  Serious: Yes (Hospitalization)
  Sender: FDA-Public Use
  Company Number: AU-ROCHE-351904

PATIENT
  Age: 54 Year
  Sex: Male

DRUGS (6)
  1. CYMEVENE [Suspect]
     Indication: DRUG USE FOR UNKNOWN INDICATION
     Route: 048
     Dates: start: 20000319
  2. SULFAMETHOXAZOLE + TRIMETHOPRIM [Suspect]
     Indication: PROPHYLAXIS
     Dosage: LONG TERM.
     Route: 065
  3. DIDANOSINE [Suspect]
     Indication: DRUG USE FOR UNKNOWN INDICATION
     Dosage: LONG TERM.
     Route: 048
     Dates: end: 20011217
  4. STAVUDINE [Suspect]
     Indication: DRUG USE FOR UNKNOWN INDICATION
     Dosage: LONG TERM.
     Route: 048
     Dates: end: 20011217
  5. TENOFOVIR DISOPROXIL FUMARATE [Suspect]
     Indication: DRUG USE FOR UNKNOWN INDICATION
     Route: 048
     Dates: start: 20010915, end: 20011217
  6. CLARITHROMYCIN [Suspect]
     Indication: PROPHYLAXIS
     Route: 065

REACTIONS (6)
  - ABDOMINAL PAIN [None]
  - DIABETES MELLITUS [None]
  - HYPERGLYCAEMIA [None]
  - LIVER FUNCTION TEST ABNORMAL [None]
  - NAUSEA [None]
  - VOMITING [None]
